FAERS Safety Report 8256386-3 (Version None)
Quarter: 2012Q2

REPORT INFORMATION
  Report Type: 
  Country: None (occurrence: None)
  Receive Date: 20120403
  Receipt Date: 20120321
  Transmission Date: 20120825
  Serious: Yes (Hospitalization, Other)
  Sender: FDA-Public Use
  Company Number: DE-ELI_LILLY_AND_COMPANY-DE201203006307

PATIENT
  Age: 72 Year
  Sex: Female

DRUGS (4)
  1. TIAPRIDEX [Concomitant]
     Dosage: UNK, EACH EVENING
  2. OLANZAPINE [Suspect]
     Indication: SCHIZOPHRENIA
     Dosage: 405 MG, MONTHLY (1/M)
     Route: 030
  3. VENLAFAXINE [Concomitant]
     Dosage: 37.5 MG, UNK
  4. MADOPAR [Concomitant]
     Dosage: UNK, EACH EVENING

REACTIONS (6)
  - HYPERTENSION [None]
  - FEELING ABNORMAL [None]
  - DIZZINESS [None]
  - TACHYCARDIA [None]
  - INJECTION SITE HAEMORRHAGE [None]
  - DYSARTHRIA [None]
